FAERS Safety Report 4777324-1 (Version None)
Quarter: 2005Q3

REPORT INFORMATION
  Report Type: 
  Country: None (occurrence: None)
  Receive Date: 20050915
  Receipt Date: 20050908
  Transmission Date: 20060218
  Serious: Yes (Other)
  Sender: FDA-Public Use
  Company Number: CIP05002098

PATIENT
  Age: 55 Year
  Sex: Female

DRUGS (1)
  1. ACTONEL [Suspect]
     Dosage: 35 MG ONCEWEEKLY, ORAL
     Route: 048
     Dates: start: 20050801, end: 20050901

REACTIONS (3)
  - DYSPHAGIA [None]
  - VIRAL INFECTION [None]
  - VOCAL CORD PARALYSIS [None]
